FAERS Safety Report 6568203-8 (Version None)
Quarter: 2010Q1

REPORT INFORMATION
  Report Type: 
  Country: None (occurrence: None)
  Receive Date: 20100203
  Receipt Date: 20100126
  Transmission Date: 20100710
  Serious: Yes (Hospitalization)
  Sender: FDA-Public Use
  Company Number: US-ROCHE-674091

PATIENT
  Age: 44 Year
  Sex: Female
  Weight: 87.2 kg

DRUGS (9)
  1. BEVACIZUMAB [Suspect]
     Dosage: LAST DOSE GIVEN ON 05 NOVEMBER 2009. TOTAL DOSE ADMINISTERED THIS COURSE 1310 MG.
     Route: 065
     Dates: start: 20090813
  2. ABRAXANE [Suspect]
     Dosage: TOTAL DOSE ADMINISTERED THIS COURSE : 500 MG.  LAST DOSE ADMINISTERED ON 12 NOVEMBER 2009.
     Route: 065
     Dates: start: 20090813
  3. GEMZAR [Suspect]
     Dosage: TOTAL DOSE ADMINISTERED THIS COURSE : 4000 MG, LAST DOSE GIVEN OV 12 NOVEMBER 2009.
     Route: 065
     Dates: start: 20090813
  4. CIPRO [Suspect]
     Indication: DRUG USE FOR UNKNOWN INDICATION
     Route: 065
  5. VANCOMYCIN [Suspect]
     Indication: DRUG USE FOR UNKNOWN INDICATION
     Route: 065
  6. VFEND [Suspect]
     Indication: DRUG USE FOR UNKNOWN INDICATION
     Route: 065
  7. VICODIN [Suspect]
     Indication: DRUG USE FOR UNKNOWN INDICATION
     Route: 065
  8. ZOSYN [Suspect]
     Indication: DRUG USE FOR UNKNOWN INDICATION
     Route: 065
  9. GADOLINIUM [Suspect]
     Indication: DRUG USE FOR UNKNOWN INDICATION
     Dosage: DRUG: GADOLINIUM FOR MRI
     Route: 065

REACTIONS (3)
  - GASTROINTESTINAL FISTULA [None]
  - INFECTION [None]
  - RENAL FAILURE [None]
